FAERS Safety Report 19427867 (Version 2)
Quarter: 2021Q2

REPORT INFORMATION
  Report Type: Spontaneous
  Country: PT (occurrence: PT)
  Receive Date: 20210616
  Receipt Date: 20210625
  Transmission Date: 20210717
  Serious: Yes (Hospitalization)
  Sender: FDA-Public Use
  Company Number: PT-VIFOR (INTERNATIONAL) INC.-VIT-2021-05081

PATIENT
  Age: 72 Year
  Sex: Female
  Weight: 65 kg

DRUGS (10)
  1. SACUBITRIL;VALSARTAN [Concomitant]
     Active Substance: SACUBITRIL\VALSARTAN
  2. BISOPROLOL [Concomitant]
     Active Substance: BISOPROLOL
  3. FUROSEMIDE. [Concomitant]
     Active Substance: FUROSEMIDE
  4. ESPIRONOLACTONA [Concomitant]
     Active Substance: SPIRONOLACTONE
  5. ALLOPURINOL. [Concomitant]
     Active Substance: ALLOPURINOL
  6. VELTASSA [Suspect]
     Active Substance: PATIROMER
     Route: 048
     Dates: start: 20210426, end: 20210503
  7. APIXABAN [Concomitant]
     Active Substance: APIXABAN
  8. ATORVASTATIN [Concomitant]
     Active Substance: ATORVASTATIN
  9. VELTASSA [Suspect]
     Active Substance: PATIROMER
     Indication: HYPERKALAEMIA
     Route: 048
     Dates: start: 20210222
  10. SPIRONOLACTONE. [Concomitant]
     Active Substance: SPIRONOLACTONE

REACTIONS (1)
  - Metabolic acidosis [Recovering/Resolving]

NARRATIVE: CASE EVENT DATE: 20210503
